FAERS Safety Report 10207095 (Version 1)
Quarter: 2014Q2

REPORT INFORMATION
  Report Type: Spontaneous
  Country: US (occurrence: None)
  Receive Date: 20140527
  Receipt Date: 20140527
  Transmission Date: 20141212
  Serious: Yes (Hospitalization)
  Sender: FDA-Public Use
  Company Number: None

PATIENT
  Age: 82 Year
  Sex: Male

DRUGS (6)
  1. VECURONIUM [Suspect]
     Indication: SURGERY
     Route: 042
     Dates: start: 20120702, end: 20120702
  2. NICOTINE [Concomitant]
  3. DALTEPARIN [Concomitant]
  4. LORAZEPAM [Concomitant]
  5. POTASSIUM PHOSPHATE [Suspect]
  6. PROPOFOL [Concomitant]

REACTIONS (3)
  - Hypertension [None]
  - Tachycardia [None]
  - Paralysis [None]
